FAERS Safety Report 5064198-7 (Version None)
Quarter: 2006Q3

REPORT INFORMATION
  Report Type: 
  Country: None (occurrence: None)
  Receive Date: 20060728
  Receipt Date: 20050825
  Transmission Date: 20061208
  Serious: No
  Sender: FDA-Public Use
  Company Number: 05US05146

PATIENT
  Sex: Female

DRUGS (1)
  1. ZANTAC [Suspect]
     Indication: DRUG USE FOR UNKNOWN INDICATION

REACTIONS (1)
  - GLOSSODYNIA [None]
